FAERS Safety Report 18344860 (Version 2)
Quarter: 2021Q1

REPORT INFORMATION
  Report Type: Spontaneous
  Country: US (occurrence: US)
  Receive Date: 20201005
  Receipt Date: 20210131
  Transmission Date: 20210419
  Serious: Yes (Hospitalization, Disabling, Other)
  Sender: FDA-Public Use
  Company Number: US-PURDUE-USA-2020-0166193

PATIENT
  Sex: Male

DRUGS (1)
  1. HYDROCODONE BITARTRATE AND ACETAMINOPHEN [Suspect]
     Active Substance: ACETAMINOPHEN\HYDROCODONE BITARTRATE
     Indication: PRODUCT USED FOR UNKNOWN INDICATION
     Dosage: 5?500 1/2 TABLET, BID DAILY
     Route: 048

REACTIONS (10)
  - Mental disorder [Unknown]
  - Emotional distress [Unknown]
  - Stress [Unknown]
  - Hospitalisation [Unknown]
  - Drug abuse [Unknown]
  - Aggression [Unknown]
  - Overdose [Unknown]
  - Drug dependence [Unknown]
  - Anxiety [Unknown]
  - Disability [Unknown]
